FAERS Safety Report 4664699-7 (Version None)
Quarter: 2005Q2

REPORT INFORMATION
  Report Type: 
  Country: None (occurrence: None)
  Receive Date: 20050517
  Receipt Date: 20050517
  Transmission Date: 20051028
  Serious: Yes (Death)
  Sender: FDA-Public Use
  Company Number: None

PATIENT
  Age: 78 Year
  Sex: Male
  Weight: 120 kg

DRUGS (16)
  1. AMIODARONE HCL [Suspect]
     Indication: ATRIAL FIBRILLATION
     Dosage: 200MG DAILY
     Dates: start: 20041001, end: 20050414
  2. ADVAIR DISKUS 100/50 [Concomitant]
  3. LANSOPRAZOLE [Concomitant]
  4. SYNTHROID [Concomitant]
  5. POTASSIUM CHLORIDE [Concomitant]
  6. PRIMIDONE [Concomitant]
  7. VANCOMYCIN [Concomitant]
  8. PROPOFOL [Concomitant]
  9. REG INSULIN DRIP [Concomitant]
  10. VECURONIUM DRIP [Concomitant]
  11. FENTANYL DRIP [Concomitant]
  12. ROCEPHIN [Concomitant]
  13. ZITHROMAX [Concomitant]
  14. LASIX [Concomitant]
  15. LEXAPRO [Concomitant]
  16. TOPROL-XL [Concomitant]

REACTIONS (12)
  - ADENOCARCINOMA [None]
  - CREPITATIONS [None]
  - CYANOSIS [None]
  - DRUG TOXICITY [None]
  - DYSPNOEA [None]
  - EPISTAXIS [None]
  - FATIGUE [None]
  - INTERNATIONAL NORMALISED RATIO INCREASED [None]
  - LUNG DISORDER [None]
  - RALES [None]
  - RHONCHI [None]
  - SYNCOPE [None]
